FAERS Safety Report 4612215-8 (Version None)
Quarter: 2005Q2

REPORT INFORMATION
  Report Type: 
  Country: None (occurrence: None)
  Receive Date: 20050308
  Receipt Date: 20041122
  Transmission Date: 20051028
  Serious: Yes (Other)
  Sender: FDA-Public Use
  Company Number: 2004UW24003

PATIENT
  Age: 43 Year
  Sex: Male

DRUGS (3)
  1. CRESTOR [Suspect]
     Indication: BLOOD CHOLESTEROL INCREASED
     Dosage: 10 MG PO
     Route: 048
     Dates: start: 20040614
  2. TRAMADOL [Suspect]
     Indication: MIGRAINE
     Dosage: 2 DF TID PO
     Route: 048
  3. DARVON [Suspect]
     Indication: MIGRAINE

REACTIONS (2)
  - MIGRAINE [None]
  - URTICARIA [None]
